FAERS Safety Report 24257781 (Version 2)
Quarter: 2024Q3

REPORT INFORMATION
  Report Type: Spontaneous
  Country: US (occurrence: US)
  Receive Date: 20240828
  Receipt Date: 20240828
  Transmission Date: 20241016
  Serious: Yes (Death, Other)
  Sender: ROCHE
  Company Number: US-ROCHE-10000060749

PATIENT
  Age: 69 Year
  Sex: Male

DRUGS (6)
  1. TOCILIZUMAB [Suspect]
     Active Substance: TOCILIZUMAB
     Indication: Kaposi sarcoma inflammatory cytokine syndrome
     Route: 065
  2. LINEZOLID [Concomitant]
     Active Substance: LINEZOLID
  3. IMIPENEM [Concomitant]
     Active Substance: IMIPENEM
  4. AZITHROMYCIN [Concomitant]
     Active Substance: AZITHROMYCIN
  5. ISAVUCONAZOLE [Concomitant]
     Active Substance: ISAVUCONAZOLE
  6. DOXORUBICIN [Concomitant]
     Active Substance: DOXORUBICIN

REACTIONS (2)
  - Distributive shock [Fatal]
  - Drug ineffective [Unknown]
